FAERS Safety Report 9178467 (Version 2)
Quarter: 2013Q4

REPORT INFORMATION
  Report Type: Spontaneous
  Country: US (occurrence: US)
  Receive Date: 20130321
  Receipt Date: 20131219
  Transmission Date: 20140711
  Serious: Yes (Other)
  Sender: FDA-Public Use
  Company Number: US-BAYER-2013-034443

PATIENT
  Age: 21 Year
  Sex: Female

DRUGS (10)
  1. YAZ [Suspect]
  2. YASMIN [Suspect]
  3. OCELLA [Suspect]
  4. HYDROCODONE/ACETAMINOPHEN [Concomitant]
     Dosage: 7.5-500MG
  5. AMOXICILLIN [Concomitant]
     Dosage: 500 MG, UNK
  6. CLINDESSE [Concomitant]
     Dosage: 2 %, UNK
     Dates: start: 20061218
  7. ALPRAZOLAM [Concomitant]
     Dosage: 0.5 MG, UNK
  8. LEXAPRO [Concomitant]
     Dosage: 10 MG, UNK
  9. PERCOCET [Concomitant]
     Indication: PAIN
     Dosage: 7.5 MG, PRN EVERY 4 HOURS
  10. LORTAB [Concomitant]

REACTIONS (4)
  - Cholecystectomy [None]
  - Cholecystitis chronic [None]
  - Injury [None]
  - Emotional distress [None]
